FAERS Safety Report 5788020-6 (Version None)
Quarter: 2008Q2

REPORT INFORMATION
  Report Type: 
  Country: None (occurrence: None)
  Receive Date: 20080625
  Receipt Date: 20080612
  Transmission Date: 20081010
  Serious: Yes (Hospitalization)
  Sender: FDA-Public Use
  Company Number: ZA-ELI_LILLY_AND_COMPANY-ZA200806003004

PATIENT
  Age: 51 Year
  Sex: Female

DRUGS (5)
  1. CYMBALTA [Suspect]
     Indication: MAJOR DEPRESSION
     Dosage: 60 MG, DAILY (1/D)
     Route: 048
     Dates: start: 20080602, end: 20080608
  2. EPILIM [Concomitant]
     Indication: EPILEPSY
     Dosage: 50 MG, 2/D
     Route: 048
  3. CLONAZEPAM [Concomitant]
     Indication: EPILEPSY
     Dosage: 2 MG, EACH EVENING
     Route: 048
     Dates: start: 20030101
  4. EPANUTIN [Concomitant]
     Indication: EPILEPSY
     Dosage: 100 MG, EACH EVENING
     Route: 048
     Dates: start: 20030101
  5. TOPIRAMATE [Concomitant]
     Indication: EPILEPSY
     Dosage: 100 MG, UNKNOWN
     Route: 048

REACTIONS (4)
  - GRAND MAL CONVULSION [None]
  - LOSS OF CONSCIOUSNESS [None]
  - PARAESTHESIA [None]
  - PARESIS [None]
